FAERS Safety Report 15914099 (Version 1)
Quarter: 2019Q1

REPORT INFORMATION
  Report Type: Spontaneous
  Country: US (occurrence: US)
  Receive Date: 20190204
  Receipt Date: 20190204
  Transmission Date: 20190417
  Serious: Yes (Disabling)
  Sender: FDA-Public Use
  Company Number: None

PATIENT
  Age: 76 Year
  Weight: 90 kg

DRUGS (20)
  1. SUPPLEMENTS [Concomitant]
     Active Substance: UNSPECIFIED INGREDIENT
  2. SYNTHROID [Concomitant]
     Active Substance: LEVOTHYROXINE SODIUM
  3. R-LIPOIC ACID [Concomitant]
  4. CALCIUM/MAGNESIUM/POTASSIUM [Concomitant]
  5. VITAMIN E [Concomitant]
     Active Substance: .ALPHA.-TOCOPHEROL
  6. VITAMIN B12 [Concomitant]
     Active Substance: CYANOCOBALAMIN
  7. VITAMIN C [Concomitant]
     Active Substance: ASCORBIC ACID
  8. FISH OIL [Concomitant]
     Active Substance: FISH OIL
  9. FOLATE [Concomitant]
     Active Substance: FOLATE SODIUM
  10. COQ10 [Concomitant]
     Active Substance: UBIDECARENONE
  11. PROBIOTICS [Concomitant]
     Active Substance: PROBIOTICS NOS
  12. DIGESTIVE ENZYMES [Concomitant]
     Active Substance: UNSPECIFIED INGREDIENT
  13. PANTHETHINE [Concomitant]
  14. ARTICHOKE LEAF EXTRACT [Concomitant]
  15. B6 [Concomitant]
     Active Substance: PYRIDOXINE HYDROCHLORIDE
  16. LOSARTAN. [Concomitant]
     Active Substance: LOSARTAN
  17. OXYGEN. [Concomitant]
     Active Substance: OXYGEN
  18. LEVOFLOXACIN 500 MG [Suspect]
     Active Substance: LEVOFLOXACIN
     Indication: LOCALISED INFECTION
     Dosage: ?          QUANTITY:1 TABLET(S);?
     Route: 048
     Dates: start: 20180928, end: 20181025
  19. HYDROCHLOROTHIAZIDE. [Concomitant]
     Active Substance: HYDROCHLOROTHIAZIDE
  20. DAILY MULTIPLE VITAMIN/MINERAL [Concomitant]

REACTIONS (10)
  - Dandruff [None]
  - Macular degeneration [None]
  - Arthralgia [None]
  - Pruritus [None]
  - Drug hypersensitivity [None]
  - Pharyngitis [None]
  - Candida infection [None]
  - Post procedural infection [None]
  - Arthropathy [None]
  - Dehydration [None]

NARRATIVE: CASE EVENT DATE: 20181005
